FAERS Safety Report 4386348-8 (Version None)
Quarter: 2004Q2

REPORT INFORMATION
  Report Type: 
  Country: None (occurrence: None)
  Receive Date: 20040623
  Receipt Date: 20040604
  Transmission Date: 20050107
  Serious: Yes (Death)
  Sender: FDA-Public Use
  Company Number: JP_040603374

PATIENT
  Age: 45 Year
  Sex: Male
  Weight: 72 kg

DRUGS (10)
  1. HUMULIN 70/30 [Suspect]
     Indication: DIABETES MELLITUS NON-INSULIN-DEPENDENT
     Dosage: 6 U IN THE EVENING
     Dates: start: 20040114
  2. HUMUALOG (INSULIN LISPRO) [Concomitant]
  3. LASIX [Concomitant]
  4. CARVEDILOL [Concomitant]
  5. DIOVAN [Concomitant]
  6. BUFFERIN [Concomitant]
  7. LIPITOR [Concomitant]
  8. ALLOPURINOL [Concomitant]
  9. FERROMIA (FERROUS CITRATE) [Concomitant]
  10. ISOSORBIDE DINITRATE [Concomitant]

REACTIONS (1)
  - DEATH [None]
